FAERS Safety Report 6683341-7 (Version None)
Quarter: 2010Q2

REPORT INFORMATION
  Report Type: 
  Country: None (occurrence: None)
  Receive Date: 20100415
  Receipt Date: 20100412
  Transmission Date: 20101027
  Serious: Yes (Death, Other)
  Sender: FDA-Public Use
  Company Number: PHHY2008CA00712

PATIENT
  Sex: Male
  Weight: 84.4 kg

DRUGS (7)
  1. ZOMETA [Suspect]
     Indication: PROSTATE CANCER
     Dosage: 4 MG EVERY 4 WEEKS
     Route: 042
     Dates: start: 20070809
  2. ZOMETA [Suspect]
     Dosage: 3 MG Q4 WEEKS
     Dates: start: 20080118
  3. ZOMETA [Suspect]
     Dosage: 4 MG, QMO
     Dates: start: 20080306
  4. ZOMETA [Suspect]
     Dosage: 4 MG ONCE A YEAR
     Dates: start: 20091021
  5. ZOMETA [Suspect]
     Dosage: 4 MG EVERY 4 WEEKS
     Route: 042
     Dates: end: 20100303
  6. AVODART [Concomitant]
  7. LUPRON [Concomitant]

REACTIONS (14)
  - BONE PAIN [None]
  - BONE SCAN ABNORMAL [None]
  - DEATH [None]
  - FATIGUE [None]
  - GENERAL PHYSICAL HEALTH DETERIORATION [None]
  - HAEMATOCRIT DECREASED [None]
  - HAEMOGLOBIN DECREASED [None]
  - MALIGNANT NEOPLASM PROGRESSION [None]
  - MEAN CELL HAEMOGLOBIN CONCENTRATION DECREASED [None]
  - MEAN CELL VOLUME INCREASED [None]
  - NEUTROPHIL COUNT INCREASED [None]
  - PROSTATIC SPECIFIC ANTIGEN INCREASED [None]
  - RED BLOOD CELL COUNT DECREASED [None]
  - WHITE BLOOD CELL COUNT INCREASED [None]
